FAERS Safety Report 8511590-1 (Version None)
Quarter: 2012Q3

REPORT INFORMATION
  Report Type: 
  Country: None (occurrence: None)
  Receive Date: 20120716
  Receipt Date: 20120710
  Transmission Date: 20120928
  Serious: Yes (Other)
  Sender: FDA-Public Use
  Company Number: PHHY2012IE059847

PATIENT
  Sex: Male

DRUGS (1)
  1. IMATINIB MESYLATE [Suspect]
     Dosage: 400 MG, DAILY

REACTIONS (3)
  - INFLAMMATION [None]
  - OSTEONECROSIS [None]
  - EAR DISORDER [None]
